FAERS Safety Report 4411289-7 (Version None)
Quarter: 2004Q3

REPORT INFORMATION
  Report Type: 
  Country: None (occurrence: None)
  Receive Date: 20040727
  Receipt Date: 20040714
  Transmission Date: 20050211
  Serious: Yes (Death, Hospitalization)
  Sender: FDA-Public Use
  Company Number: 2004048385

PATIENT
  Age: 55 Year
  Sex: Female

DRUGS (7)
  1. AMLODIPINE [Suspect]
     Indication: ILL-DEFINED DISORDER
     Dosage: ORAL
     Route: 048
  2. NIZADITINE (NIZADITINE) [Suspect]
     Indication: DUODENAL ULCER HAEMORRHAGE
     Dosage: 150 MG , ORAL
     Route: 048
     Dates: start: 20010101
  3. INSULIN [Concomitant]
  4. PROPHYTHIOURACIL (PROPHYLTHIOURACIL) [Concomitant]
  5. VOGLIBOSE (VOGLIBOSE0 [Concomitant]
  6. MECOBALAMIN (MECOBALAMIN) [Concomitant]
  7. ETIZOLAM (ETILOZAM) [Concomitant]

REACTIONS (16)
  - ABDOMINAL TENDERNESS [None]
  - APLASTIC ANAEMIA [None]
  - BODY TEMPERATURE DECREASED [None]
  - BONE MARROW DEPRESSION [None]
  - DIARRHOEA [None]
  - DUODENAL ULCER HAEMORRHAGE [None]
  - EMBOLISM [None]
  - HYPOREFLEXIA [None]
  - MUCORMYCOSIS [None]
  - PALLOR [None]
  - PANCYTOPENIA [None]
  - PNEUMONIA [None]
  - PYREXIA [None]
  - SENSORY LOSS [None]
  - SEPTIC SHOCK [None]
  - UPPER RESPIRATORY TRACT INFECTION [None]
